FAERS Safety Report 5812587-2 (Version None)
Quarter: 2008Q3

REPORT INFORMATION
  Report Type: 
  Country: None (occurrence: None)
  Receive Date: 20080711
  Receipt Date: 20080701
  Transmission Date: 20090109
  Serious: Yes (Hospitalization)
  Sender: FDA-Public Use
  Company Number: 2008AL003976

PATIENT
  Age: 58 Year
  Sex: Female

DRUGS (1)
  1. DIGOXIN [Suspect]
     Indication: HEART RATE INCREASED
     Dosage: 0.25MG, QD, PO
     Route: 048
     Dates: start: 20050101

REACTIONS (3)
  - CHEST PAIN [None]
  - DIABETES MELLITUS [None]
  - FATIGUE [None]
